FAERS Safety Report 4275532-X (Version None)
Quarter: 2004Q1

REPORT INFORMATION
  Report Type: 
  Country: None (occurrence: None)
  Receive Date: 20040121
  Receipt Date: 20040109
  Transmission Date: 20041129
  Serious: Yes (Hospitalization)
  Sender: FDA-Public Use
  Company Number: FR-GLAXOSMITHKLINE-B0319880A

PATIENT
  Age: 51 Year
  Sex: Male
  Weight: 41 kg

DRUGS (5)
  1. EPIVIR [Suspect]
     Indication: HIV INFECTION
     Route: 048
     Dates: start: 19950615, end: 20030429
  2. ZIAGEN [Suspect]
     Indication: HIV INFECTION
     Route: 048
     Dates: start: 20030317, end: 20030429
  3. VIREAD [Suspect]
     Indication: HIV INFECTION
     Route: 048
     Dates: start: 20030317, end: 20030429
  4. BACTRIM [Suspect]
     Route: 048
     Dates: start: 20030222, end: 20030422
  5. ZERIT [Concomitant]
     Indication: HIV INFECTION
     Route: 048
     Dates: start: 19950101, end: 20030317

REACTIONS (1)
  - TOXIC SKIN ERUPTION [None]
